FAERS Safety Report 7401687-1 (Version None)
Quarter: 2011Q2

REPORT INFORMATION
  Report Type: 
  Country: None (occurrence: None)
  Receive Date: 20110408
  Receipt Date: 20110401
  Transmission Date: 20111010
  Serious: No
  Sender: FDA-Public Use
  Company Number: US-BIOGENIDEC-2011BI012606

PATIENT
  Age: 42 Year
  Sex: Female

DRUGS (2)
  1. AVONEX [Suspect]
     Route: 030
     Dates: start: 19980821, end: 20060501
  2. AVONEX [Suspect]
     Indication: MULTIPLE SCLEROSIS
     Route: 030
     Dates: start: 20070213

REACTIONS (4)
  - BALANCE DISORDER [None]
  - BLINDNESS UNILATERAL [None]
  - SPEECH DISORDER [None]
  - NERVOUSNESS [None]
